FAERS Safety Report 5483783-1 (Version None)
Quarter: 2007Q4

REPORT INFORMATION
  Report Type: 
  Country: None (occurrence: None)
  Receive Date: 20071012
  Receipt Date: 20071011
  Transmission Date: 20080405
  Serious: Yes (Hospitalization)
  Sender: FDA-Public Use
  Company Number: B0477937B

PATIENT

DRUGS (7)
  1. PURINETHOL [Suspect]
     Indication: CROHN'S DISEASE
     Dosage: 50MG PER DAY
     Dates: start: 20050101
  2. SERETIDE [Suspect]
     Indication: DRUG USE FOR UNKNOWN INDICATION
     Dosage: 500MCG TWICE PER DAY
  3. PREDNISONE [Suspect]
     Indication: ASTHMA
     Dosage: 5MG PER DAY
  4. SEROPRAM [Suspect]
     Dosage: 20MG PER DAY
     Dates: start: 20050101
  5. CO-DAFALGAN [Suspect]
     Indication: DRUG USE FOR UNKNOWN INDICATION
     Dosage: 500MG AS REQUIRED
  6. COLECALCIFEROL [Concomitant]
     Dosage: 8DROP PER DAY
  7. DAFALGAN [Concomitant]

REACTIONS (4)
  - CEREBRAL HAEMORRHAGE [None]
  - CEREBRAL HAEMORRHAGE NEONATAL [None]
  - DRUG EXPOSURE DURING PREGNANCY [None]
  - INFECTION IN AN IMMUNOCOMPROMISED HOST [None]
